FAERS Safety Report 9656132 (Version 2)
Quarter: 2013Q4

REPORT INFORMATION
  Report Type: Report from Study
  Country: IN (occurrence: IN)
  Receive Date: 20131030
  Receipt Date: 20131107
  Transmission Date: 20140711
  Serious: Yes (Hospitalization)
  Sender: FDA-Public Use
  Company Number: PHHY2013IN122178

PATIENT
  Age: 65 Year
  Sex: Male
  Weight: 64.4 kg

DRUGS (18)
  1. ACLASTA/ZOLEDRONATE [Suspect]
     Indication: OSTEOPOROSIS
     Dosage: 5 MG, UNK
     Route: 042
     Dates: start: 20120107
  2. HYDROXYCHLOROQUINE [Concomitant]
     Indication: RHEUMATOID ARTHRITIS
     Dosage: 1 DF, DAILY
     Dates: start: 201201
  3. CARDACE [Concomitant]
     Indication: HYPERTENSION
     Dosage: 2.5 MG, UNK
     Route: 048
     Dates: start: 201201
  4. CARDACE [Concomitant]
     Dosage: 5 MG, ONCE DAILY MORNING
  5. ANXIT PLUS [Concomitant]
     Indication: ANXIETY
     Dosage: 1 DF, UNK
     Route: 048
     Dates: start: 201302
  6. SHELCAL [Concomitant]
     Indication: MINERAL SUPPLEMENTATION
     Dosage: 1 DF, UNK
     Route: 048
     Dates: start: 201201
  7. LASILACTONE [Concomitant]
     Indication: FLUID RETENTION
     Dosage: 0.5 DF, ONCE DAILY MORNING
     Route: 048
     Dates: start: 201302
  8. GEMCAL [Concomitant]
     Indication: VITAMIN SUPPLEMENTATION
     Dosage: 1 DF, UNK
     Route: 048
     Dates: start: 20131022
  9. METFORMIN HCL [Concomitant]
     Indication: DIABETES MELLITUS
     Dosage: 500 MG, BID
     Dates: start: 201302
  10. PANTOPRAZOLE [Concomitant]
     Indication: ULCER
     Dosage: 40 MG, UNK
     Route: 048
     Dates: start: 201201
  11. FOSAVANCE [Concomitant]
     Indication: OSTEOPOROSIS
     Dosage: UNK ONCE A WEEK
     Dates: start: 20131022
  12. ATARAX                                  /POR/ [Concomitant]
     Indication: ANTIALLERGIC THERAPY
     Dosage: 1 DF, UNK
     Route: 048
     Dates: start: 201302, end: 20131022
  13. CETIL//CEFUROXIME SODIUM [Concomitant]
     Indication: PROPHYLAXIS
     Dosage: 500 MG, BID
     Dates: start: 20131024, end: 20131028
  14. ULTRACET [Concomitant]
     Indication: PAIN
     Dosage: 1 DF, TID
     Dates: start: 20131024, end: 20131028
  15. SIGNOFLAM [Concomitant]
     Indication: ANTIINFLAMMATORY THERAPY
     Dosage: 1 DF, TID
     Dates: start: 20131024, end: 20131028
  16. RABLET [Concomitant]
     Indication: ULCER
     Dosage: 20 MG, UNK
     Route: 048
     Dates: start: 20131024, end: 20131028
  17. FERIUM-XT [Concomitant]
     Indication: MINERAL SUPPLEMENTATION
     Dosage: UNK UKN, BID FOR 3 WEEKS
     Dates: start: 20131024
  18. INAPURE [Concomitant]
     Indication: ANGINA PECTORIS
     Dosage: 5 MG, BID
     Dates: start: 20131024

REACTIONS (8)
  - Osteonecrosis [Recovered/Resolved]
  - Arthralgia [Recovered/Resolved]
  - Movement disorder [Recovered/Resolved]
  - Mitral valve incompetence [Recovered/Resolved]
  - Tricuspid valve incompetence [Recovered/Resolved]
  - Ventricular hypokinesia [Recovered/Resolved]
  - Systolic dysfunction [Recovered/Resolved]
  - Ejection fraction decreased [Recovered/Resolved]
